FAERS Safety Report 16166044 (Version 2)
Quarter: 2020Q4

REPORT INFORMATION
  Report Type: Report from Study
  Country: DE (occurrence: DE)
  Receive Date: 20190406
  Receipt Date: 20201111
  Transmission Date: 20210113
  Serious: Yes (Hospitalization)
  Sender: FDA-Public Use
  Company Number: DE-ACCORD-117922

PATIENT
  Age: 55 Year
  Sex: Female
  Weight: 53 kg

DRUGS (6)
  1. TAVEGIL [Concomitant]
     Active Substance: CLEMASTINE FUMARATE
     Indication: PROPHYLAXIS
     Dosage: DAILY DOSE: 1 DOSAGE FORM EVERY 3 WEEKS
     Route: 042
  2. CARBOPLATIN. [Suspect]
     Active Substance: CARBOPLATIN
     Indication: OVARIAN CANCER
     Dosage: MOST RECENT DOSE PRIOR TO SAE WAS GIVEN ON 03-DEC-2013
     Route: 042
     Dates: start: 20131113, end: 20131203
  3. ONDANSETRON [Concomitant]
     Active Substance: ONDANSETRON
     Indication: PROPHYLAXIS
     Dosage: DAILY DOSE: 8 MG EVERY 3 WEEKS
     Route: 048
     Dates: start: 20131113, end: 20131205
  4. AVASTIN [Suspect]
     Active Substance: BEVACIZUMAB
     Indication: OVARIAN CANCER
     Dosage: MOST RECENT DOSE PRIOR TO SAE WAS GIVEN ON 03-DEC-2013
     Route: 042
     Dates: start: 20131114, end: 20131203
  5. DEXAMETHASONE. [Concomitant]
     Active Substance: DEXAMETHASONE
     Indication: PROPHYLAXIS
     Dosage: DAILY DOSE: 20 MG EVERY 3 WEEKS
     Route: 042
  6. PACLITAXEL/PACLITAXEL LIPOSOME [Suspect]
     Active Substance: PACLITAXEL
     Indication: OVARIAN CANCER
     Dosage: MOST RECENT DOSE PRIOR TO SAE WAS GIVEN ON 03-DEC-2013
     Route: 042
     Dates: start: 20131113, end: 20131203

REACTIONS (5)
  - Gastric perforation [Recovered/Resolved]
  - Gastric ulcer [Recovered/Resolved]
  - Peritonitis [Recovered/Resolved]
  - Ileus [Recovered/Resolved]
  - Intestinal perforation [Recovered/Resolved]

NARRATIVE: CASE EVENT DATE: 20131206
